FAERS Safety Report 22624880 (Version 1)
Quarter: 2023Q2

REPORT INFORMATION
  Report Type: Spontaneous
  Country: DE (occurrence: DE)
  Receive Date: 20230621
  Receipt Date: 20230621
  Transmission Date: 20230722
  Serious: Yes (Other)
  Sender: FDA-Public Use
  Company Number: DE-PFIZER INC-PV202300107316

PATIENT
  Sex: Male

DRUGS (1)
  1. LORLATINIB [Suspect]
     Active Substance: LORLATINIB
     Dosage: UNK

REACTIONS (5)
  - Diabetes mellitus inadequate control [Unknown]
  - Fluid retention [Unknown]
  - Productive cough [Unknown]
  - Constipation [Unknown]
  - Poor quality sleep [Unknown]
